FAERS Safety Report 19769385 (Version 1)
Quarter: 2021Q3

REPORT INFORMATION
  Report Type: Spontaneous
  Country: DE (occurrence: DE)
  Receive Date: 20210831
  Receipt Date: 20210831
  Transmission Date: 20211014
  Serious: Yes (Other)
  Sender: FDA-Public Use
  Company Number: DE-PFIZER INC-202101061152

PATIENT
  Age: 75 Year
  Sex: Female

DRUGS (1)
  1. CRIZOTINIB [Suspect]
     Active Substance: CRIZOTINIB
     Indication: NON-SMALL CELL LUNG CANCER
     Dosage: UNK
     Route: 048
     Dates: start: 201701, end: 201810

REACTIONS (3)
  - Renal abscess [Recovered/Resolved]
  - Liver abscess [Recovered/Resolved]
  - Chest wall abscess [Recovered/Resolved]

NARRATIVE: CASE EVENT DATE: 2018
